FAERS Safety Report 9329280 (Version 2)
Quarter: 2013Q3

REPORT INFORMATION
  Report Type: Report from Study
  Country: JP (occurrence: JP)
  Receive Date: 20130604
  Receipt Date: 20130723
  Transmission Date: 20140515
  Serious: Yes (Hospitalization)
  Sender: FDA-Public Use
  Company Number: JP-GLAXOSMITHKLINE-B0894935A

PATIENT
  Age: 37 Year
  Sex: Female
  Weight: 51 kg

DRUGS (11)
  1. TYKERB [Suspect]
     Indication: BREAST CANCER
     Dosage: 1000MG PER DAY
     Route: 048
     Dates: start: 20130207
  2. TYKERB [Suspect]
     Indication: BREAST CANCER
     Dosage: 750MG PER DAY
     Route: 048
  3. HERCEPTIN [Suspect]
     Indication: BREAST CANCER
     Route: 042
     Dates: start: 20130207
  4. HERCEPTIN [Suspect]
     Indication: BREAST CANCER
     Route: 042
  5. PACLITAXEL [Suspect]
     Indication: BREAST CANCER
     Route: 042
     Dates: start: 20130207
  6. TAMOXIFEN [Suspect]
     Indication: BREAST CANCER
     Route: 048
     Dates: start: 20130207
  7. LEUPRORELIN ACETATE [Suspect]
     Indication: BREAST CANCER
     Route: 058
     Dates: start: 20130207
  8. LOPEMIN [Concomitant]
     Indication: DIARRHOEA
     Route: 048
     Dates: start: 20130411
  9. DERMOVATE [Concomitant]
     Indication: PARONYCHIA
     Route: 061
     Dates: start: 20130318
  10. DIFFERIN [Concomitant]
     Indication: PARONYCHIA
     Route: 061
     Dates: start: 20130318
  11. BUSCOPAN [Concomitant]
     Indication: ABDOMINAL PAIN UPPER
     Route: 048
     Dates: start: 20130328

REACTIONS (1)
  - Pancreatitis acute [Recovered/Resolved]
